FAERS Safety Report 5066381-3 (Version None)
Quarter: 2006Q3

REPORT INFORMATION
  Report Type: 
  Country: None (occurrence: None)
  Receive Date: 20060801
  Receipt Date: 20060508
  Transmission Date: 20061208
  Serious: Yes (Other)
  Sender: FDA-Public Use
  Company Number: US-BAYER-200611962BCC

PATIENT
  Sex: Female
  Weight: 113 kg

DRUGS (2)
  1. ASPIRIN [Suspect]
     Indication: INFLAMMATION
     Dosage: TOTAL DAILY DOSE: 1950 MG  UNIT DOSE: 325 MG
     Route: 048
  2. PREVACID [Concomitant]

REACTIONS (3)
  - ABDOMINAL PAIN UPPER [None]
  - BARRETT'S OESOPHAGUS [None]
  - GASTROOESOPHAGEAL REFLUX DISEASE [None]
